FAERS Safety Report 19422936 (Version 1)
Quarter: 2021Q2

REPORT INFORMATION
  Report Type: Spontaneous
  Country: JP (occurrence: JP)
  Receive Date: 20210616
  Receipt Date: 20210616
  Transmission Date: 20210717
  Serious: Yes (Hospitalization)
  Sender: FDA-Public Use
  Company Number: JP-TEVA-2021-JP-1922454

PATIENT
  Age: 43 Year
  Sex: Female

DRUGS (3)
  1. GEMCITABINE. [Suspect]
     Active Substance: GEMCITABINE
     Indication: ANGIOIMMUNOBLASTIC T-CELL LYMPHOMA
     Dosage: ON DAYS 1 AND 8; GEMCITABINE 2800 MG IN TOTAL; RECEIVED 1 CYCLE
     Route: 065
  2. DEXAMETHASONE. [Suspect]
     Active Substance: DEXAMETHASONE
     Indication: ANGIOIMMUNOBLASTIC T-CELL LYMPHOMA
     Dosage: 33 MILLIGRAM DAILY; FROM DAY 1 TO DAY 4; RECEIVED 1 CYCLE
     Route: 065
  3. CISPLATIN. [Suspect]
     Active Substance: CISPLATIN
     Indication: ANGIOIMMUNOBLASTIC T-CELL LYMPHOMA
     Dosage: ON DAY 1; 100 MG OF CISPLATIN IN TOTAL; RECEIVED 1 CYCLE
     Route: 065

REACTIONS (1)
  - Renal-limited thrombotic microangiopathy [Recovered/Resolved]
